FAERS Safety Report 5402114-6 (Version None)
Quarter: 2007Q3

REPORT INFORMATION
  Report Type: 
  Country: None (occurrence: None)
  Receive Date: 20070727
  Receipt Date: 20070718
  Transmission Date: 20080115
  Serious: No
  Sender: FDA-Public Use
  Company Number: TPA2007A01536

PATIENT
  Age: 27 Year
  Sex: Male
  Weight: 81.6475 kg

DRUGS (3)
  1. ROZEREM [Suspect]
     Indication: INSOMNIA
     Dosage: 8 MG, QHS, PER ORAL; 16 MG, QHS, PER ORAL; 24 MG, QHS, PER ORAL
     Route: 048
     Dates: end: 20070718
  2. ROZEREM [Suspect]
     Indication: INSOMNIA
     Dosage: 8 MG, QHS, PER ORAL; 16 MG, QHS, PER ORAL; 24 MG, QHS, PER ORAL
     Route: 048
     Dates: start: 20070701
  3. CLONAZEPAM [Concomitant]

REACTIONS (1)
  - MIDDLE INSOMNIA [None]
